FAERS Safety Report 15948173 (Version 1)
Quarter: 2019Q1

REPORT INFORMATION
  Report Type: Spontaneous
  Country: US (occurrence: US)
  Receive Date: 20190211
  Receipt Date: 20190211
  Transmission Date: 20190417
  Serious: Yes (Hospitalization, Other)
  Sender: FDA-Public Use
  Company Number: US-GILEAD-2019-0389878

PATIENT

DRUGS (13)
  1. SODIUM CHLORIDE. [Concomitant]
     Active Substance: SODIUM CHLORIDE
  2. RALTEGRAVIR. [Concomitant]
     Active Substance: RALTEGRAVIR
     Dosage: 800 MG
     Dates: start: 20120108
  3. HYDROCODONE/ACETAMINOPHEN [Concomitant]
     Active Substance: ACETAMINOPHEN\HYDROCODONE
  4. ERGOCALCIFEROL. [Concomitant]
     Active Substance: ERGOCALCIFEROL
  5. TRUVADA [Suspect]
     Active Substance: EMTRICITABINE\TENOFOVIR DISOPROXIL FUMARATE
     Indication: PRODUCT USED FOR UNKNOWN INDICATION
     Dosage: 1 DF
     Route: 065
     Dates: start: 20120108
  6. SULFAMETHOXAZOLE;TRIMETHOPRIM [Concomitant]
     Active Substance: SULFAMETHOXAZOLE\TRIMETHOPRIM
  7. CHLORHEXIDINE [Concomitant]
     Active Substance: CHLORHEXIDINE
  8. DAPTOMYCIN. [Concomitant]
     Active Substance: DAPTOMYCIN
  9. MUPIROCIN CALCIUM. [Concomitant]
     Active Substance: MUPIROCIN CALCIUM
  10. AZITHROMYCIN ANHYDROUS. [Concomitant]
     Active Substance: AZITHROMYCIN ANHYDROUS
  11. DOXYCYCLINE. [Concomitant]
     Active Substance: DOXYCYCLINE
  12. RITONAVIR. [Concomitant]
     Active Substance: RITONAVIR
     Dosage: 100 MG
     Dates: start: 20120108
  13. DARUNAVIR [Concomitant]
     Active Substance: DARUNAVIR
     Dosage: 800 MG
     Dates: start: 20120108

REACTIONS (2)
  - Subcutaneous abscess [Recovered/Resolved]
  - Furuncle [Recovered/Resolved]

NARRATIVE: CASE EVENT DATE: 20120720
